FAERS Safety Report 5073453-6 (Version None)
Quarter: 2006Q3

REPORT INFORMATION
  Report Type: 
  Country: None (occurrence: None)
  Receive Date: 20060803
  Receipt Date: 20060719
  Transmission Date: 20061208
  Serious: Yes (Other)
  Sender: FDA-Public Use
  Company Number: 2006S1006706

PATIENT
  Age: 36 Year
  Sex: Female

DRUGS (6)
  1. AMITRIPTYLINE HCL [Suspect]
     Indication: MIGRAINE PROPHYLAXIS
     Dosage: PO
     Route: 048
     Dates: start: 20040326, end: 20051005
  2. VALACYCLOVIR HCL [Concomitant]
  3. FLUOXETINE [Concomitant]
  4. ORTHO EVRA [Concomitant]
  5. NITROFURANTOIN [Concomitant]
  6. LANSOPRAZOLE [Concomitant]

REACTIONS (3)
  - ABORTION INDUCED [None]
  - DRUG EXPOSURE DURING PREGNANCY [None]
  - PREGNANCY [None]
